FAERS Safety Report 7684206-4 (Version None)
Quarter: 2011Q3

REPORT INFORMATION
  Report Type: 
  Country: None (occurrence: None)
  Receive Date: 20110815
  Receipt Date: 20110812
  Transmission Date: 20111222
  Serious: Yes (Other)
  Sender: FDA-Public Use
  Company Number: US-BAYER-2011-072486

PATIENT
  Age: 54 Year
  Sex: Female

DRUGS (11)
  1. LORATADINE [Concomitant]
  2. VALIUM [Concomitant]
     Indication: PAIN
     Dosage: 5 MG, PRN
  3. ADVIL LIQUI-GELS [Concomitant]
     Indication: PAIN
  4. AVELOX [Suspect]
     Indication: PNEUMONIA KLEBSIELLA
     Dosage: UNK, ONCE
     Route: 048
     Dates: start: 20110729
  5. AMLODIPINE [Concomitant]
  6. NASONEX [Concomitant]
  7. CLOZAPINE [Concomitant]
  8. SPIRONOLACTONE [Concomitant]
  9. ADVAIR DISKUS 100/50 [Concomitant]
  10. ATENOLOL [Concomitant]
  11. VALIUM [Concomitant]
     Indication: MUSCLE SPASMS

REACTIONS (2)
  - MUSCLE SPASMS [None]
  - MYALGIA [None]
